FAERS Safety Report 14777842 (Version 5)
Quarter: 2019Q3

REPORT INFORMATION
  Report Type: Report from Study
  Country: None (occurrence: NL)
  Receive Date: 20180419
  Receipt Date: 20190705
  Transmission Date: 20191004
  Serious: Yes (Hospitalization, Other)
  Sender: FDA-Public Use
  Company Number: NL-ABBVIE-18K-114-2324069-00

PATIENT
  Age: 56 Year
  Sex: Male
  Weight: 110 kg

DRUGS (5)
  1. AMOXICILLINE [Concomitant]
     Active Substance: AMOXICILLIN
     Indication: PRODUCT USED FOR UNKNOWN INDICATION
  2. DUODOPA [Suspect]
     Active Substance: CARBIDOPA\LEVODOPA
     Dosage: MD: 10.5, CD: 4.7, ED: 5.0, 16 HOUR ADMINISTRATION
     Route: 050
  3. DUODOPA [Suspect]
     Active Substance: CARBIDOPA\LEVODOPA
     Dosage: MD 12, CD 5, ED 5
     Route: 050
  4. DUODOPA [Suspect]
     Active Substance: CARBIDOPA\LEVODOPA
     Indication: PARKINSON^S DISEASE
     Dosage: MD 11, CD 4.7, ED 5
     Route: 050
     Dates: start: 20160919
  5. VITAMIN B3 [Concomitant]
     Active Substance: NIACIN
     Indication: PRODUCT USED FOR UNKNOWN INDICATION

REACTIONS (10)
  - Parkinson^s disease [Not Recovered/Not Resolved]
  - Medical device discomfort [Unknown]
  - Muscle rigidity [Not Recovered/Not Resolved]
  - Memory impairment [Unknown]
  - Lymphoma [Recovering/Resolving]
  - Salivary hypersecretion [Not Recovered/Not Resolved]
  - Leukaemia [Recovering/Resolving]
  - Therapeutic product effect incomplete [Unknown]
  - Hypokinesia [Not Recovered/Not Resolved]
  - Dyskinesia [Not Recovered/Not Resolved]

NARRATIVE: CASE EVENT DATE: 201802
